FAERS Safety Report 15433646 (Version 1)
Quarter: 2018Q3

REPORT INFORMATION
  Report Type: Spontaneous
  Country: US (occurrence: US)
  Receive Date: 20180927
  Receipt Date: 20180927
  Transmission Date: 20181010
  Serious: No
  Sender: FDA-Public Use
  Company Number: US-BAYER-2018-178071

PATIENT
  Age: 66 Year
  Sex: Female
  Weight: 106 kg

DRUGS (4)
  1. DULCOLAX (BISACODYL) [Concomitant]
     Active Substance: BISACODYL
  2. PERI?COLACE [Concomitant]
     Active Substance: CASANTHRANOL\DOCUSATE SODIUM
  3. MIRALAX [Suspect]
     Active Substance: POLYETHYLENE GLYCOL 3350
     Indication: CONSTIPATION
     Dosage: 1?3 CAPFULS  QD
     Route: 048
     Dates: start: 2018, end: 2018
  4. MIRALAX [Suspect]
     Active Substance: POLYETHYLENE GLYCOL 3350
     Indication: CONSTIPATION
     Dosage: 1?3 CAPFULS , QD
     Dates: start: 2015, end: 2018

REACTIONS (4)
  - Product physical issue [Unknown]
  - Product use in unapproved indication [Unknown]
  - Off label use [Unknown]
  - Poor quality drug administered [Unknown]

NARRATIVE: CASE EVENT DATE: 2015
